FAERS Safety Report 18018290 (Version 2)
Quarter: 2020Q4

REPORT INFORMATION
  Report Type: Report from Study
  Country: None (occurrence: US)
  Receive Date: 20200713
  Receipt Date: 20201012
  Transmission Date: 20210113
  Serious: Yes (Hospitalization)
  Sender: FDA-Public Use
  Company Number: US-ABBVIE-20K-163-3479688-00

PATIENT
  Sex: Female
  Weight: 65.83 kg

DRUGS (1)
  1. HUMIRA [Suspect]
     Active Substance: ADALIMUMAB
     Indication: CROHN^S DISEASE
     Route: 058
     Dates: start: 20200610

REACTIONS (4)
  - Crohn^s disease [Recovered/Resolved]
  - Abdominal discomfort [Unknown]
  - Food poisoning [Recovered/Resolved]
  - Abdominal rigidity [Unknown]

NARRATIVE: CASE EVENT DATE: 2020
